FAERS Safety Report 9792831 (Version 2)
Quarter: 2014Q2

REPORT INFORMATION
  Report Type: Spontaneous
  Country: US (occurrence: US)
  Receive Date: 20140102
  Receipt Date: 20140625
  Transmission Date: 20141212
  Serious: No
  Sender: FDA-Public Use
  Company Number: US-SA-2013SA115547

PATIENT
  Age: 53 Year
  Sex: Female
  Weight: 69.85 kg

DRUGS (8)
  1. AUBAGIO [Suspect]
     Indication: MULTIPLE SCLEROSIS
     Route: 048
     Dates: start: 20130808, end: 20131116
  2. GABAPENTIN [Concomitant]
     Indication: NEUROPATHY PERIPHERAL
     Dosage: DATE STARTED: BEFORE 20-JUL-2013
  3. GABAPENTIN [Concomitant]
     Indication: PAIN
     Dosage: DATE STARTED: BEFORE 20-JUL-2013
  4. TIZANIDINE [Concomitant]
     Indication: MUSCLE SPASTICITY
     Dosage: DATE STARTED: BEFORE JULY 2013
  5. AMBIEN [Concomitant]
     Indication: INSOMNIA
     Dosage: DATE STARTED: BEFORE JULY2013
  6. LEXAPRO [Concomitant]
     Indication: DEPRESSION
     Dosage: DATE STARTED: BEFORE JULY2013
  7. LORAZEPAM [Concomitant]
     Indication: ANXIETY
     Dosage: DATE STARTED: BEFORE JULY2013
  8. LORAZEPAM [Concomitant]
     Indication: SLEEP DISORDER
     Dosage: DATE STARTED: BEFORE JULY2013

REACTIONS (5)
  - Chest discomfort [Not Recovered/Not Resolved]
  - Hypoaesthesia [Not Recovered/Not Resolved]
  - Headache [Not Recovered/Not Resolved]
  - Condition aggravated [Not Recovered/Not Resolved]
  - Muscle spasms [Recovered/Resolved]
